FAERS Safety Report 9649074 (Version 1)
Quarter: 2013Q4

REPORT INFORMATION
  Report Type: Spontaneous
  Country: US (occurrence: US)
  Receive Date: 20131028
  Receipt Date: 20131028
  Transmission Date: 20140711
  Serious: Yes (Other)
  Sender: FDA-Public Use
  Company Number: CHPA2013US016076

PATIENT
  Age: 75 Year
  Sex: Female

DRUGS (2)
  1. KERI ORIGINAL [Suspect]
     Dosage: UNK, UNK
     Route: 061
  2. KERI SHEA BUTTER [Suspect]
     Dosage: UNK, UNK
     Route: 061

REACTIONS (3)
  - Sjogren^s syndrome [Not Recovered/Not Resolved]
  - Swelling face [Recovering/Resolving]
  - Lip swelling [Recovering/Resolving]
